FAERS Safety Report 14305270 (Version 1)
Quarter: 2017Q4

REPORT INFORMATION
  Report Type: Report from Study
  Country: JP (occurrence: JP)
  Receive Date: 20171219
  Receipt Date: 20171219
  Transmission Date: 20180321
  Serious: Yes (Hospitalization, Other)
  Sender: FDA-Public Use
  Company Number: JP-OTSUKA-005888

PATIENT
  Age: 44 Year
  Sex: Male
  Weight: 97.8 kg

DRUGS (40)
  1. RISPERDAL [Concomitant]
     Active Substance: RISPERIDONE
     Dosage: 2 MG, QD
     Route: 048
     Dates: start: 20081003, end: 20081016
  2. CONTOMIN [Concomitant]
     Active Substance: CHLORPROMAZINE
     Indication: SCHIZOPHRENIA
     Dosage: 150 MG, QD
     Route: 048
     Dates: start: 20080620, end: 20081219
  3. CONTOMIN [Concomitant]
     Active Substance: CHLORPROMAZINE
     Dosage: 600 MG, QD
     Route: 048
     Dates: start: 20081220, end: 20090123
  4. FLUDECASIN [Concomitant]
     Active Substance: FLUPHENAZINE DECANOATE
     Dosage: 25 MG, QD
     Route: 030
     Dates: start: 20090704, end: 20090704
  5. LENDORMIN [Concomitant]
     Active Substance: BROTIZOLAM
     Indication: PRODUCT USED FOR UNKNOWN INDICATION
     Dosage: 0.5 MG, PRN
     Route: 048
     Dates: start: 20090320, end: 20090404
  6. LENDORMIN [Concomitant]
     Active Substance: BROTIZOLAM
     Dosage: 0.25 MG, QD
     Route: 048
     Dates: start: 20090801
  7. SENNA [Concomitant]
     Active Substance: SENNA LEAF\SENNOSIDES\SENNOSIDES A AND B
     Indication: PRODUCT USED FOR UNKNOWN INDICATION
     Dosage: FORM:TABLET
     Route: 065
     Dates: start: 20070222, end: 20090319
  8. LEVOMEPROMAZINE [Concomitant]
     Active Substance: LEVOMEPROMAZINE
     Indication: PRODUCT USED FOR UNKNOWN INDICATION
     Dosage: UNK
     Route: 065
     Dates: start: 20041114
  9. BENZALIN [Concomitant]
     Active Substance: NITRAZEPAM
     Indication: PRODUCT USED FOR UNKNOWN INDICATION
     Dosage: 10 MG, QD
     Route: 048
     Dates: start: 20060630
  10. CONTOMIN [Concomitant]
     Active Substance: CHLORPROMAZINE
     Dosage: 300 MG, QD
     Route: 048
     Dates: start: 20090124
  11. FLUDECASIN [Concomitant]
     Active Substance: FLUPHENAZINE DECANOATE
     Dosage: 25 MG, QD
     Route: 030
     Dates: start: 20081002, end: 20081002
  12. ARIPIPRAZOLE. [Suspect]
     Active Substance: ARIPIPRAZOLE
     Dosage: 24 MG, QD
     Route: 048
     Dates: start: 20080905
  13. LODOPIN [Concomitant]
     Active Substance: ZOTEPINE
     Indication: SCHIZOPHRENIA
     Dosage: 150 MG, QD
     Route: 048
     Dates: start: 20070302, end: 20081219
  14. RISPERDAL [Concomitant]
     Active Substance: RISPERIDONE
     Dosage: 3 MG, QD
     Route: 048
     Dates: start: 20080905, end: 20081002
  15. CONTOMIN [Concomitant]
     Active Substance: CHLORPROMAZINE
     Dosage: 100 MG, PRN
     Route: 048
     Dates: start: 20090405
  16. FLUDECASIN [Concomitant]
     Active Substance: FLUPHENAZINE DECANOATE
     Dosage: 25 MG, QD
     Route: 030
     Dates: start: 20080821, end: 20080821
  17. FLUDECASIN [Concomitant]
     Active Substance: FLUPHENAZINE DECANOATE
     Dosage: 25 MG, QD
     Route: 030
     Dates: start: 20081030, end: 20081030
  18. FLUDECASIN [Concomitant]
     Active Substance: FLUPHENAZINE DECANOATE
     Dosage: 25 MG, QD
     Route: 030
     Dates: start: 20081127, end: 20081127
  19. U PAN [Concomitant]
     Active Substance: LORAZEPAM
     Indication: PRODUCT USED FOR UNKNOWN INDICATION
     Dosage: 0.5 MG, PRN
     Route: 048
     Dates: start: 20090124, end: 20090319
  20. FLUDECASIN [Concomitant]
     Active Substance: FLUPHENAZINE DECANOATE
     Indication: SCHIZOPHRENIA
     Dosage: 25 MG, QD
     Route: 030
     Dates: start: 20080724, end: 20080724
  21. FLUDECASIN [Concomitant]
     Active Substance: FLUPHENAZINE DECANOATE
     Dosage: 25 MG, QM
     Route: 030
     Dates: start: 20090207, end: 20090207
  22. ARIPIPRAZOLE. [Suspect]
     Active Substance: ARIPIPRAZOLE
     Indication: SCHIZOPHRENIA
     Dosage: 12 MG, QD
     Route: 048
     Dates: start: 20080718, end: 20080904
  23. CETILO [Concomitant]
     Active Substance: SENNA LEAF
     Indication: PRODUCT USED FOR UNKNOWN INDICATION
     Dosage: 2 DF, DAILY DOSE
     Route: 048
     Dates: start: 20070222, end: 20090319
  24. FLUDECASIN [Concomitant]
     Active Substance: FLUPHENAZINE DECANOATE
     Dosage: 25 MG, QD
     Route: 030
     Dates: start: 20090606, end: 20090606
  25. FLUDECASIN [Concomitant]
     Active Substance: FLUPHENAZINE DECANOATE
     Dosage: 25 MG, QD
     Route: 030
     Dates: start: 20090801, end: 20090801
  26. RISPERDAL [Concomitant]
     Active Substance: RISPERIDONE
     Indication: SCHIZOPHRENIA
     Dosage: 6 MG, QD
     Route: 048
     Dates: start: 20080620, end: 20080904
  27. FLUDECASIN [Concomitant]
     Active Substance: FLUPHENAZINE DECANOATE
     Dosage: 25 MG, QD
     Route: 030
     Dates: start: 20090509, end: 20090509
  28. BICAMOL [Concomitant]
     Active Substance: BIPERIDEN HYDROCHLORIDE
     Indication: PRODUCT USED FOR UNKNOWN INDICATION
     Dosage: 6 MG, QD
     Route: 048
     Dates: end: 20081219
  29. LEVOTOMIN [Concomitant]
     Active Substance: LEVOMEPROMAZINE
     Indication: SCHIZOPHRENIA
     Dosage: 50 MG, QD
     Route: 048
     Dates: start: 20041114
  30. AMOBAN [Concomitant]
     Active Substance: ZOPICLONE
     Indication: PRODUCT USED FOR UNKNOWN INDICATION
     Dosage: 10 MG, QD
     Route: 048
     Dates: start: 20050610
  31. DEPAKENE [Concomitant]
     Active Substance: VALPROIC ACID
     Indication: SCHIZOPHRENIA
     Dosage: 600 MG, QD
     Route: 048
     Dates: start: 20051125, end: 20081219
  32. DEPAKENE [Concomitant]
     Active Substance: VALPROIC ACID
     Dosage: 1200 MG, QD
     Route: 048
     Dates: start: 20081220
  33. RISPERDAL [Concomitant]
     Active Substance: RISPERIDONE
     Dosage: 1 MG, PRN LIQUID
     Route: 048
     Dates: start: 20081003, end: 20090110
  34. FLUDECASIN [Concomitant]
     Active Substance: FLUPHENAZINE DECANOATE
     Dosage: 25 MG, QD
     Route: 030
     Dates: start: 20090110, end: 20090110
  35. FLUPHENAZINE [Concomitant]
     Active Substance: FLUPHENAZINE
     Indication: PRODUCT USED FOR UNKNOWN INDICATION
     Dosage: IM DEPOT
     Route: 065
     Dates: start: 20080724, end: 20090912
  36. RISPERDAL [Concomitant]
     Active Substance: RISPERIDONE
     Dosage: 2 MG, PRN
     Route: 048
     Dates: start: 20080620, end: 20081002
  37. FLUDECASIN [Concomitant]
     Active Substance: FLUPHENAZINE DECANOATE
     Dosage: 25 MG, QD
     Route: 030
     Dates: start: 20090912, end: 20090912
  38. HORIZON [Concomitant]
     Active Substance: DIAZEPAM
     Indication: PRODUCT USED FOR UNKNOWN INDICATION
     Dosage: 10 MG, QD
     Route: 048
     Dates: start: 20081220
  39. LORAZEPAM. [Concomitant]
     Active Substance: LORAZEPAM
     Indication: PRODUCT USED FOR UNKNOWN INDICATION
     Dosage: UNK
     Route: 065
     Dates: start: 20090124, end: 20090319
  40. ZOPICLONE [Concomitant]
     Active Substance: ZOPICLONE
     Indication: PRODUCT USED FOR UNKNOWN INDICATION
     Dosage: FORM:TABLET
     Route: 065
     Dates: start: 20050610

REACTIONS (4)
  - Glucose tolerance impaired [Not Recovered/Not Resolved]
  - Hyperlipidaemia [Not Recovered/Not Resolved]
  - Diabetes mellitus [Recovering/Resolving]
  - Psychiatric symptom [Recovered/Resolved]

NARRATIVE: CASE EVENT DATE: 20081219
